FAERS Safety Report 9162931 (Version 1)
Quarter: 2013Q1

REPORT INFORMATION
  Report Type: Spontaneous
  Country: US (occurrence: None)
  Receive Date: 20130227
  Receipt Date: 20130227
  Transmission Date: 20140127
  Serious: Yes (Hospitalization)
  Sender: FDA-Public Use
  Company Number: TPA2013A01631

PATIENT
  Age: 71 Year
  Sex: Male

DRUGS (11)
  1. ACTOS (PIOGLITAZONE HYDROCHLORIDE) [Suspect]
     Indication: DIABETES MELLITUS
  2. ACETYLSALICYLIC ACID(ACETYLSALICYLIC ACID) [Concomitant]
  3. AVALIDE (HYDROCHLOROTHIAZIDE, IREBESARTAN) [Concomitant]
  4. METFORMIN(METFORMIN) [Concomitant]
  5. VERAPAMIL (VERAPAMIL) [Concomitant]
  6. EZETROL (EZETIMIBE) [Concomitant]
  7. CITALOPRAM (CITALOPRAM) [Concomitant]
  8. LIPITOR (ATORVASTATIN CALCIUM) [Concomitant]
  9. PANTOLOC (PANTOPRAZOLE SODIUM SESQUIHYDRATE) [Concomitant]
  10. NPH INSULIN (ISOPHANE INSULIN) [Concomitant]
  11. IMOVANE (ZOPICLONE) [Concomitant]

REACTIONS (4)
  - Pericarditis [None]
  - Pleural effusion [None]
  - Pericardial effusion [None]
  - Weight increased [None]
